FAERS Safety Report 26061022 (Version 1)
Quarter: 2025Q4

REPORT INFORMATION
  Report Type: Spontaneous
  Country: CN (occurrence: CN)
  Receive Date: 20251118
  Receipt Date: 20251118
  Transmission Date: 20260117
  Serious: Yes (Hospitalization)
  Sender: MYLAN
  Company Number: CN-MYLANLABS-2025M1096989

PATIENT
  Age: 13 Year
  Sex: Male
  Weight: 45 kg

DRUGS (4)
  1. ZOLOFT [Suspect]
     Active Substance: SERTRALINE HYDROCHLORIDE
     Indication: Behaviour disorder
     Dosage: 700 MILLIGRAM, QD
     Dates: start: 20251102, end: 20251102
  2. ZOLOFT [Suspect]
     Active Substance: SERTRALINE HYDROCHLORIDE
     Indication: Emotional disorder
  3. CLONAZEPAM [Suspect]
     Active Substance: CLONAZEPAM
     Indication: Behaviour disorder
     Dosage: 56 MILLIGRAM, QD
     Dates: start: 20251102, end: 20251102
  4. CLONAZEPAM [Suspect]
     Active Substance: CLONAZEPAM
     Indication: Emotional disorder

REACTIONS (4)
  - Asthenia [Recovering/Resolving]
  - Somnolence [Recovering/Resolving]
  - Sinus tachycardia [Recovering/Resolving]
  - Dizziness [Recovering/Resolving]

NARRATIVE: CASE EVENT DATE: 20251103
